FAERS Safety Report 5055184-1 (Version None)
Quarter: 2006Q3

REPORT INFORMATION
  Report Type: 
  Country: None (occurrence: None)
  Receive Date: 20060717
  Receipt Date: 20060710
  Transmission Date: 20061208
  Serious: Yes (Death)
  Sender: FDA-Public Use
  Company Number: 2006-07-0380

PATIENT
  Age: 58 Year
  Sex: Female

DRUGS (9)
  1. ALBUTEROL [Suspect]
     Dosage: ORAL AER INH
     Route: 055
  2. CARDIZEM [Concomitant]
  3. RHINOCORT [Concomitant]
  4. AEROBID [Concomitant]
  5. AEROBID [Concomitant]
  6. NEURONTIN [Concomitant]
  7. CELEBREX [Concomitant]
  8. COMBIVENT [Concomitant]
  9. WELLBUTRIN [Concomitant]

REACTIONS (2)
  - BRAIN HERNIATION [None]
  - HAEMORRHAGE INTRACRANIAL [None]
